FAERS Safety Report 10249449 (Version 1)
Quarter: 2014Q2

REPORT INFORMATION
  Report Type: Spontaneous
  Country: US (occurrence: US)
  Receive Date: 20140620
  Receipt Date: 20140620
  Transmission Date: 20141212
  Serious: Yes (Other)
  Sender: FDA-Public Use
  Company Number: PHHY2014US072570

PATIENT
  Sex: Male

DRUGS (3)
  1. XOLAIR [Suspect]
     Dosage: UNK UKN, UNK
  2. LOSARTAN [Suspect]
     Dosage: UNK UKN, UNK
  3. PLAVIX [Concomitant]
     Dosage: UNK UKN, UNK

REACTIONS (2)
  - Cardiac disorder [Unknown]
  - Blood pressure increased [Unknown]
